FAERS Safety Report 17048763 (Version 1)
Quarter: 2019Q4

REPORT INFORMATION
  Report Type: Spontaneous
  Country: JP (occurrence: JP)
  Receive Date: 20191119
  Receipt Date: 20191119
  Transmission Date: 20200122
  Serious: Yes (Hospitalization)
  Sender: FDA-Public Use
  Company Number: JP-JNJFOC-20191013225

PATIENT
  Age: 79 Year
  Weight: 67 kg

DRUGS (21)
  1. NICORANDIL [Concomitant]
     Active Substance: NICORANDIL
  2. AMIODARONE HYDROCHLORIDE. [Concomitant]
     Active Substance: AMIODARONE HYDROCHLORIDE
  3. TOLVAPTAN [Concomitant]
     Active Substance: TOLVAPTAN
     Dosage: 0.5T, PRN
  4. HALCION [Concomitant]
     Active Substance: TRIAZOLAM
     Dosage: 2T1 VDS.
  5. CARVEDILOL. [Concomitant]
     Active Substance: CARVEDILOL
  6. ATORVASTATIN CALCIUM TRIHYDRATE [Concomitant]
     Active Substance: ATORVASTATIN CALCIUM
     Dosage: 1T1 M
  7. AZOSEMIDE [Concomitant]
     Active Substance: AZOSEMIDE
     Dosage: 1.5T1 M
  8. LANSOPRAZOLE. [Concomitant]
     Active Substance: LANSOPRAZOLE
  9. OLMESARTAN MEDOXOMIL. [Concomitant]
     Active Substance: OLMESARTAN MEDOXOMIL
     Dosage: 1T1 M
  10. OLMESARTAN MEDOXOMIL. [Concomitant]
     Active Substance: OLMESARTAN MEDOXOMIL
     Dosage: 1T1 M
  11. FEBURIC [Concomitant]
     Active Substance: FEBUXOSTAT
     Dosage: 1T1 M
  12. AZOSEMIDE [Concomitant]
     Active Substance: AZOSEMIDE
     Dosage: 0.5T, PRN
  13. THYRADIN S [Concomitant]
     Active Substance: LEVOTHYROXINE SODIUM
     Dosage: 1T1 M
  14. PIMOBENDAN [Concomitant]
     Active Substance: PIMOBENDAN
  15. RIVAROXABAN [Suspect]
     Active Substance: RIVAROXABAN
     Indication: CEREBROVASCULAR ACCIDENT PROPHYLAXIS
     Dosage: 10 MG, QD
     Route: 048
     Dates: start: 201204, end: 20191016
  16. FERRUM                             /00023548/ [Concomitant]
     Dosage: 1T1 VDS.
  17. MAGMITT [Concomitant]
     Active Substance: MAGNESIUM OXIDE
  18. ATORVASTATIN CALCIUM TRIHYDRATE [Concomitant]
     Active Substance: ATORVASTATIN CALCIUM
     Dosage: 1T1 M
  19. SPIRONOLACTONE. [Concomitant]
     Active Substance: SPIRONOLACTONE
     Dosage: 0.5T1 M
  20. TOLVAPTAN [Concomitant]
     Active Substance: TOLVAPTAN
     Dosage: 1.5T1 M
  21. SENNOSIDE A [Concomitant]
     Active Substance: SENNOSIDE A
     Dosage: 1T1 VDS.

REACTIONS (4)
  - Contusion [Unknown]
  - Skin laceration [Unknown]
  - Extradural haematoma [Recovered/Resolved]
  - Fall [Unknown]

NARRATIVE: CASE EVENT DATE: 20190920
